FAERS Safety Report 11729030 (Version 1)
Quarter: 2015Q4

REPORT INFORMATION
  Report Type: Spontaneous
  Country: US (occurrence: US)
  Receive Date: 20151112
  Receipt Date: 20151112
  Transmission Date: 20160304
  Serious: No
  Sender: FDA-Public Use
  Company Number: US-MYLANLABS-2015M1027755

PATIENT
  Age: 18 Year
  Sex: Female
  Weight: 53.61 kg

DRUGS (2)
  1. PAIN MEDICATION [Concomitant]
     Active Substance: UNSPECIFIED INGREDIENT
     Indication: ARTHRALGIA
     Dosage: UNK
  2. XULANE [Suspect]
     Active Substance: ETHINYL ESTRADIOL\NORELGESTROMIN
     Indication: CONTRACEPTION
     Dosage: 150/35 ?G/DAY, QWK FOR 3 WKS THEN OFF FOR 1 WK
     Route: 062
     Dates: start: 201502

REACTIONS (3)
  - Application site rash [Recovered/Resolved]
  - Application site discolouration [Not Recovered/Not Resolved]
  - Application site exfoliation [Recovered/Resolved]

NARRATIVE: CASE EVENT DATE: 201502
